FAERS Safety Report 8831852 (Version 3)
Quarter: 2014Q3

REPORT INFORMATION
  Report Type: Report from Study
  Country: US (occurrence: US)
  Receive Date: 20121009
  Receipt Date: 20140807
  Transmission Date: 20150326
  Serious: Yes (Hospitalization)
  Sender: FDA-Public Use
  Company Number: US-ROCHE-1104112

PATIENT
  Sex: Female
  Weight: 118 kg

DRUGS (1)
  1. RITUXAN [Suspect]
     Active Substance: RITUXIMAB
     Indication: AUTOIMMUNE HAEMOLYTIC ANAEMIA
     Route: 042

REACTIONS (5)
  - Spinal fracture [Unknown]
  - Pain [Unknown]
  - Off label use [Unknown]
  - Fatigue [Unknown]
  - Dyspnoea [Unknown]
